FAERS Safety Report 6111536-X (Version None)
Quarter: 2009Q1

REPORT INFORMATION
  Report Type: 
  Country: None (occurrence: None)
  Receive Date: 20090309
  Receipt Date: 20090225
  Transmission Date: 20090719
  Serious: Yes (Hospitalization)
  Sender: FDA-Public Use
  Company Number: 2009-00540

PATIENT
  Age: 73 Year
  Sex: Female

DRUGS (7)
  1. VELCADE [Suspect]
     Indication: MULTIPLE MYELOMA
     Dosage: 2.23 MG
     Dates: start: 20090126, end: 20090129
  2. DEXAMETHASONE [Concomitant]
  3. METOPROLOL TARTRATE [Concomitant]
  4. EUTIROX (LEVOTHYROXINE) [Concomitant]
  5. ZANTAC 150 [Concomitant]
  6. TRAMADOL HCL [Concomitant]
  7. CARDIOASPRIN (ACETYLSALICYLIC ACID) [Concomitant]

REACTIONS (3)
  - ASPARTATE AMINOTRANSFERASE INCREASED [None]
  - ATRIAL FIBRILLATION [None]
  - BLOOD LACTATE DEHYDROGENASE INCREASED [None]
